FAERS Safety Report 8199761-8 (Version None)
Quarter: 2012Q1

REPORT INFORMATION
  Report Type: 
  Country: None (occurrence: None)
  Receive Date: 20120312
  Receipt Date: 20120307
  Transmission Date: 20120608
  Serious: Yes (Hospitalization)
  Sender: FDA-Public Use
  Company Number: US-BRISTOL-MYERS SQUIBB COMPANY-16274987

PATIENT
  Age: 80 Year
  Sex: Male
  Weight: 51 kg

DRUGS (2)
  1. DASATINIB [Suspect]
     Indication: BLADDER CANCER
     Dosage: LAST DOSE:15NOV11
     Route: 048
     Dates: start: 20111019, end: 20111115
  2. PROTONIX [Concomitant]
     Dosage: PROTONIX GTT,SWITCHED TO PROTONIX 40MG IV Q12H ON 25NOV11
     Dates: start: 20111122

REACTIONS (2)
  - OESOPHAGITIS [None]
  - ANAL FISTULA [None]
